FAERS Safety Report 20939809 (Version 1)
Quarter: 2022Q2

REPORT INFORMATION
  Report Type: Report from Study
  Country: GB (occurrence: GB)
  Receive Date: 20220609
  Receipt Date: 20220609
  Transmission Date: 20220721
  Serious: Yes (Other)
  Sender: FDA-Public Use
  Company Number: GB-ALLERGAN-2218614US

PATIENT
  Sex: Female

DRUGS (1)
  1. BOTULINUM TOXIN TYPE A [Suspect]
     Active Substance: BOTULINUM TOXIN TYPE A
     Indication: Product used for unknown indication
     Dosage: UNK UNK, SINGLE

REACTIONS (6)
  - Suicidal ideation [Unknown]
  - Lip swelling [Unknown]
  - Facial paralysis [Unknown]
  - Injury [Unknown]
  - Emotional distress [Unknown]
  - Eyelid ptosis [Unknown]
